FAERS Safety Report 7476324-0 (Version None)
Quarter: 2011Q2

REPORT INFORMATION
  Report Type: 
  Country: None (occurrence: None)
  Receive Date: 20110512
  Receipt Date: 20110504
  Transmission Date: 20111010
  Serious: Yes (Other)
  Sender: FDA-Public Use
  Company Number: US-WATSON-2011-04895

PATIENT
  Age: 9 Month

DRUGS (1)
  1. DIAZEPAM [Suspect]
     Indication: DRUG EXPOSURE DURING PREGNANCY
     Dosage: UNK
     Route: 064

REACTIONS (3)
  - VISUAL ACUITY REDUCED [None]
  - NYSTAGMUS [None]
  - NERVOUS SYSTEM DISORDER [None]
